FAERS Safety Report 15200653 (Version 1)
Quarter: 2018Q3

REPORT INFORMATION
  Report Type: Report from Study
  Country: US (occurrence: US)
  Receive Date: 20180726
  Receipt Date: 20180726
  Transmission Date: 20181010
  Serious: Yes (Other)
  Sender: FDA-Public Use
  Company Number: US-ROCHE-2156994

PATIENT

DRUGS (4)
  1. CYCLOPHOSPHAMIDE. [Suspect]
     Active Substance: CYCLOPHOSPHAMIDE
     Indication: PROPHYLAXIS AGAINST TRANSPLANT REJECTION
     Dosage: GIVEN IN FOUR EQUAL FRACTIONS (50 MG/KG) ON DAY ?5 THROUGH DAY ?2
     Route: 042
  2. THYMOGLOBULIN [Suspect]
     Active Substance: LAPINE T-LYMPHOCYTE IMMUNE GLOBULIN
     Indication: PROPHYLAXIS AGAINST TRANSPLANT REJECTION
     Dosage: 0.5 MG/KG ON DAY ?5, 1 MG/KG ON DAYS ?4, AND ?3, AND 1.5 MG/KG ON DAYS ?2, AND ?1 (TOTAL DOSE 5.5 MG
     Route: 042
  3. FILGRASTIM [Concomitant]
     Active Substance: FILGRASTIM
     Route: 058
  4. RITUXIMAB. [Suspect]
     Active Substance: RITUXIMAB
     Indication: PROPHYLAXIS AGAINST TRANSPLANT REJECTION
     Dosage: ON DAYS ?6 AND +1
     Route: 042

REACTIONS (19)
  - Osteonecrosis [Unknown]
  - Bone infarction [Unknown]
  - Spinal fracture [Unknown]
  - Clostridium difficile colitis [Unknown]
  - Post transplant lymphoproliferative disorder [Unknown]
  - Type 1 diabetes mellitus [Unknown]
  - Cellulitis [Unknown]
  - Pneumonia [Unknown]
  - Adrenal insufficiency [Unknown]
  - Seizure [Unknown]
  - Suicidal ideation [Recovered/Resolved]
  - Meningitis [Unknown]
  - Subcutaneous abscess [Unknown]
  - Empyema [Unknown]
  - Urosepsis [Unknown]
  - Deep vein thrombosis [Unknown]
  - Immune thrombocytopenic purpura [Unknown]
  - Drug hypersensitivity [Unknown]
  - Budd-Chiari syndrome [Unknown]
